FAERS Safety Report 18869302 (Version 3)
Quarter: 2021Q4

REPORT INFORMATION
  Report Type: Report from Study
  Country: US (occurrence: US)
  Receive Date: 20210210
  Receipt Date: 20211110
  Transmission Date: 20220303
  Serious: Yes (Death)
  Sender: FDA-Public Use
  Company Number: US-ABBVIE-21K-163-3766395-00

PATIENT
  Age: 71 Year
  Sex: Male
  Weight: 78.088 kg

DRUGS (1)
  1. IBRUTINIB [Suspect]
     Active Substance: IBRUTINIB
     Indication: Product used for unknown indication
     Route: 048
     Dates: end: 20201006

REACTIONS (1)
  - Death [Fatal]

NARRATIVE: CASE EVENT DATE: 20201007
